FAERS Safety Report 16119871 (Version 2)
Quarter: 2019Q2

REPORT INFORMATION
  Report Type: Report from Study
  Country: CN (occurrence: CN)
  Receive Date: 20190326
  Receipt Date: 20190412
  Transmission Date: 20190711
  Serious: Yes (Hospitalization, Other)
  Sender: FDA-Public Use
  Company Number: PHHY2019CN056704

PATIENT
  Age: 34 Year
  Sex: Male
  Weight: 44 kg

DRUGS (40)
  1. TRIMETAZIDINE DIHYDROCHLORIDE [Concomitant]
     Active Substance: TRIMETAZIDINE DIHYDROCHLORIDE
     Indication: CARDIAC DISORDER
     Dosage: 35 MG, BID
     Route: 048
     Dates: start: 20180917, end: 20180930
  2. REDUCED GLUTATHIONE SODIUM [Concomitant]
     Active Substance: GLUTATHIONE
     Indication: LIVER DISORDER
     Dosage: 2700 MG, QD
     Route: 042
     Dates: start: 20180911, end: 20180919
  3. DEZOCINE [Concomitant]
     Active Substance: DEZOCINE
     Indication: WOUND COMPLICATION
     Dosage: 30 MG, QD
     Route: 048
     Dates: start: 20180912, end: 20180917
  4. OMEPRAZOLE SODIUM [Concomitant]
     Active Substance: OMEPRAZOLE SODIUM
     Indication: GASTROOESOPHAGEAL REFLUX PROPHYLAXIS
     Dosage: 80 MG, QD
     Route: 042
     Dates: start: 20180924, end: 20180925
  5. CALCIUM GLUCONATE. [Concomitant]
     Active Substance: CALCIUM GLUCONATE
     Indication: NUTRITIONAL SUPPLEMENTATION
     Dosage: 20 ML, QD
     Route: 042
     Dates: start: 20180925, end: 20180925
  6. MYFORTIC [Suspect]
     Active Substance: MYCOPHENOLATE SODIUM
     Dosage: 360 MG, QD
     Route: 048
     Dates: start: 20180929, end: 20190104
  7. MICAFUNGIN SODIUM [Concomitant]
     Active Substance: MICAFUNGIN SODIUM
     Indication: INFECTION
  8. LEVAMLODIPINE BESYLATE [Concomitant]
     Active Substance: LEVAMLODIPINE BESYLATE
     Indication: HYPERTENSION
     Dosage: 2.5 MG, QD
     Route: 048
     Dates: start: 20180921, end: 20180930
  9. TORSEMIDE. [Concomitant]
     Active Substance: TORSEMIDE
     Indication: DIURETIC THERAPY
     Dosage: 50 MG, QD
     Route: 048
     Dates: start: 20180915, end: 20180916
  10. CEFOPERAZONE SODIUM AND TAZOBACTAM SODIUM [Concomitant]
     Active Substance: CEFOPERAZONE\TAZOBACTAM SODIUM
     Indication: PROPHYLAXIS
     Dosage: 4000 MG, BID
     Route: 042
     Dates: start: 20180911, end: 20180927
  11. METOPROLOL SUCCINATE. [Concomitant]
     Active Substance: METOPROLOL SUCCINATE
     Indication: HYPERTENSION
     Dosage: 47.5 MG, BID
     Route: 048
     Dates: start: 20180918, end: 20180921
  12. CEFOPERAZONE SODIUM AND TAZOBACTAM SODIUM [Concomitant]
     Active Substance: CEFOPERAZONE\TAZOBACTAM SODIUM
     Indication: INFECTION
  13. MICAFUNGIN SODIUM [Concomitant]
     Active Substance: MICAFUNGIN SODIUM
     Indication: PROPHYLAXIS
     Dosage: 100 MG, QD
     Route: 042
     Dates: start: 20180911, end: 20180921
  14. HUMAN FIBRINOGEN [Concomitant]
     Indication: COAGULOPATHY
     Dosage: 2 MG, QD
     Route: 042
     Dates: start: 20180920, end: 20180920
  15. MYFORTIC [Suspect]
     Active Substance: MYCOPHENOLATE SODIUM
     Dosage: 720 MG, QD
     Route: 048
     Dates: start: 20190104, end: 20190228
  16. BASILIXIMAB [Suspect]
     Active Substance: BASILIXIMAB
     Indication: PRODUCT USED FOR UNKNOWN INDICATION
     Dosage: 20 MG, QD
     Route: 065
     Dates: start: 20180911, end: 20180911
  17. METOPROLOL SUCCINATE. [Concomitant]
     Active Substance: METOPROLOL SUCCINATE
     Indication: PROPHYLAXIS
  18. CREATINE PHOSPHATE SODIUM [Concomitant]
     Active Substance: CREATINE
     Indication: PROPHYLAXIS
  19. REDUCED GLUTATHIONE SODIUM [Concomitant]
     Active Substance: GLUTATHIONE
     Indication: PROPHYLAXIS
  20. TIGECYCLINE. [Concomitant]
     Active Substance: TIGECYCLINE
     Indication: INFECTION
     Dosage: 50 MG, BID
     Route: 042
     Dates: start: 20180911, end: 20180917
  21. MOSAPRIDE CITRATE [Concomitant]
     Active Substance: MOSAPRIDE CITRATE
     Indication: GASTROINTESTINAL DISORDER
     Dosage: 5 MG, TID
     Route: 048
     Dates: start: 20180916, end: 20180920
  22. HUMAN ALBUMIN [Concomitant]
     Active Substance: ALBUMIN HUMAN
     Indication: SUPPLEMENTATION THERAPY
     Dosage: 50 ML, QD
     Route: 042
     Dates: start: 20180918, end: 20180926
  23. HUMAN ALBUMIN [Concomitant]
     Active Substance: ALBUMIN HUMAN
     Indication: PROPHYLAXIS
  24. CREATINE PHOSPHATE SODIUM [Concomitant]
     Active Substance: CREATINE
     Indication: CARDIOMYOPATHY
     Dosage: 2 MG, QD
     Route: 042
     Dates: start: 20180911, end: 20180919
  25. OMEPRAZOLE SODIUM [Concomitant]
     Active Substance: OMEPRAZOLE SODIUM
     Indication: PROPHYLAXIS
  26. MYFORTIC [Suspect]
     Active Substance: MYCOPHENOLATE SODIUM
     Indication: PRODUCT USED FOR UNKNOWN INDICATION
     Dosage: 1440 MG, QD
     Route: 048
     Dates: start: 20180911, end: 20180917
  27. MYFORTIC [Suspect]
     Active Substance: MYCOPHENOLATE SODIUM
     Dosage: 720 MG, QD
     Route: 048
     Dates: start: 20180918, end: 20180928
  28. ACETILCISTEINA [Concomitant]
     Active Substance: ACETYLCYSTEINE
     Indication: NUTRITIONAL SUPPLEMENTATION
     Dosage: 400 MG, QD
     Route: 042
     Dates: start: 20180913, end: 20180923
  29. SODIUM RABEPRAZOLE [Concomitant]
     Active Substance: RABEPRAZOLE SODIUM
     Indication: PROPHYLAXIS AGAINST GASTROINTESTINAL ULCER
     Dosage: 20 MG, BID
     Route: 048
     Dates: start: 20180918, end: 20180930
  30. SODIUM BICARBONATE. [Concomitant]
     Active Substance: SODIUM BICARBONATE
     Indication: URINE ALKALINISATION THERAPY
     Dosage: 125 ML, QD
     Route: 042
     Dates: start: 20180920, end: 20180920
  31. DEZOCINE [Concomitant]
     Active Substance: DEZOCINE
     Indication: PROPHYLAXIS
  32. POTASSIUM CHLORIDE. [Concomitant]
     Active Substance: POTASSIUM CHLORIDE
     Indication: WOUND COMPLICATION
     Dosage: 15 ML, QD
     Route: 042
     Dates: start: 20180914, end: 20180916
  33. BASILIXIMAB [Suspect]
     Active Substance: BASILIXIMAB
     Dosage: 20 MG, QD
     Route: 065
     Dates: start: 20180915, end: 20180915
  34. ULINASTATIN [Concomitant]
     Active Substance: ULINASTATIN
     Indication: ANGIOPATHY
     Dosage: 30 IU, QD
     Route: 042
     Dates: start: 20180913, end: 20180927
  35. TRIMETAZIDINE DIHYDROCHLORIDE [Concomitant]
     Active Substance: TRIMETAZIDINE DIHYDROCHLORIDE
     Indication: PROPHYLAXIS
  36. ISOSORBIDE MONONITRATE. [Concomitant]
     Active Substance: ISOSORBIDE MONONITRATE
     Indication: CARDIAC DISORDER
     Dosage: 60 MG, QD
     Route: 048
     Dates: start: 20180917, end: 20180930
  37. ISOSORBIDE MONONITRATE. [Concomitant]
     Active Substance: ISOSORBIDE MONONITRATE
     Indication: PROPHYLAXIS
  38. POTASSIUM CHLORIDE. [Concomitant]
     Active Substance: POTASSIUM CHLORIDE
     Indication: PROPHYLAXIS
  39. TORSEMIDE. [Concomitant]
     Active Substance: TORSEMIDE
     Indication: PROPHYLAXIS
  40. TIGECYCLINE. [Concomitant]
     Active Substance: TIGECYCLINE
     Indication: PROPHYLAXIS

REACTIONS (8)
  - Proteinuria [Unknown]
  - Agranulocytosis [Recovered/Resolved]
  - Pyrexia [Recovered/Resolved]
  - Thrombocytopenia [Recovered/Resolved]
  - Hyperuricaemia [Recovered/Resolved]
  - Hyperamylasaemia [Recovered/Resolved]
  - Hyperglycaemia [Recovered/Resolved]
  - Anaemia [Not Recovered/Not Resolved]

NARRATIVE: CASE EVENT DATE: 20180915
